FAERS Safety Report 5482487-9 (Version None)
Quarter: 2007Q4

REPORT INFORMATION
  Report Type: 
  Country: None (occurrence: None)
  Receive Date: 20071011
  Receipt Date: 20071004
  Transmission Date: 20080405
  Serious: Yes (Death, Other)
  Sender: FDA-Public Use
  Company Number: US-WYE-H00515507

PATIENT
  Age: 21 Year
  Sex: Male

DRUGS (4)
  1. RAPAMUNE [Suspect]
     Indication: PROPHYLAXIS AGAINST TRANSPLANT REJECTION
     Dosage: UNSPECIFIED
  2. RAPAMUNE [Suspect]
     Dosage: UNSPECIFIED
  3. GANCICLOVIR [Concomitant]
     Indication: CYTOMEGALOVIRUS INFECTION
     Dosage: UNSPECIFIED
  4. METHYLPREDNISOLONE [Concomitant]
     Indication: PROPHYLAXIS AGAINST TRANSPLANT REJECTION
     Dosage: UNSPECIFIED

REACTIONS (7)
  - CARDIAC ARREST [None]
  - CARDIAC FAILURE [None]
  - HAEMOLYTIC URAEMIC SYNDROME [None]
  - MULTI-ORGAN FAILURE [None]
  - SEPSIS [None]
  - THROMBOCYTOPENIA [None]
  - TRANSPLANT REJECTION [None]
